FAERS Safety Report 7842323-X (Version None)
Quarter: 2011Q4

REPORT INFORMATION
  Report Type: 
  Country: None (occurrence: None)
  Receive Date: 20111025
  Receipt Date: 20111020
  Transmission Date: 20120403
  Serious: Yes (Other)
  Sender: FDA-Public Use
  Company Number: BG-B.I. PHARMACEUTICALS,INC./RIDGEFIELD-2011-BP-24834YA

PATIENT
  Age: 74 Year
  Sex: Male
  Weight: 68 kg

DRUGS (1)
  1. TAMSULOSIN HCL [Suspect]
     Indication: BENIGN PROSTATIC HYPERPLASIA
     Dosage: 0.4 MG
     Route: 048
     Dates: start: 20110812, end: 20110816

REACTIONS (1)
  - EXTRASYSTOLES [None]
